FAERS Safety Report 7667462-8 (Version None)
Quarter: 2011Q3

REPORT INFORMATION
  Report Type: 
  Country: None (occurrence: None)
  Receive Date: 20110806
  Receipt Date: 20110407
  Transmission Date: 20111222
  Serious: No
  Sender: FDA-Public Use
  Company Number: US-ABBOTT-11P-163-0717313-00

PATIENT
  Sex: Male

DRUGS (4)
  1. NIASPAN [Suspect]
     Indication: BLOOD CHOLESTEROL INCREASED
     Dosage: AT BEDTIME
     Route: 048
  2. BYSTOLIC [Concomitant]
     Indication: PRODUCT USED FOR UNKNOWN INDICATION
     Route: 048
  3. CRESTOR [Suspect]
     Indication: PRODUCT USED FOR UNKNOWN INDICATION
     Route: 048
     Dates: end: 20080101
  4. WELCHOL [Suspect]
     Indication: PRODUCT USED FOR UNKNOWN INDICATION
     Route: 048

REACTIONS (6)
  - WEIGHT DECREASED [None]
  - PAIN IN EXTREMITY [None]
  - MALAISE [None]
  - OEDEMA PERIPHERAL [None]
  - FLUSHING [None]
  - PSORIATIC ARTHROPATHY [None]
